FAERS Safety Report 18401533 (Version 1)
Quarter: 2020Q4

REPORT INFORMATION
  Report Type: Report from Study
  Country: None (occurrence: US)
  Receive Date: 20201020
  Receipt Date: 20201020
  Transmission Date: 20210114
  Serious: Yes (Hospitalization, Other)
  Sender: FDA-Public Use
  Company Number: US-ABBVIE-20K-163-3608690-00

PATIENT
  Sex: Female

DRUGS (1)
  1. RINVOQ [Suspect]
     Active Substance: UPADACITINIB
     Indication: RHEUMATOID ARTHRITIS
     Route: 048

REACTIONS (10)
  - Neck pain [Unknown]
  - Cardiac operation [Unknown]
  - Swelling [Unknown]
  - Accident [Unknown]
  - Weight increased [Unknown]
  - Muscle spasms [Recovering/Resolving]
  - Pericardial effusion [Unknown]
  - Pain in extremity [Unknown]
  - Catheterisation cardiac [Unknown]
  - Stent placement [Unknown]

NARRATIVE: CASE EVENT DATE: 2017
